FAERS Safety Report 5578746-1 (Version None)
Quarter: 2008Q1

REPORT INFORMATION
  Report Type: 
  Country: None (occurrence: None)
  Receive Date: 20080102
  Receipt Date: 20071218
  Transmission Date: 20080703
  Serious: Yes (Other)
  Sender: FDA-Public Use
  Company Number: FR-BAYER-200718405GPV

PATIENT
  Age: 45 Year
  Sex: Female

DRUGS (2)
  1. LEVONORGESTREL IUD [Suspect]
     Indication: DRUG USE FOR UNKNOWN INDICATION
     Dosage: TOTAL DAILY DOSE: 20 ?G
     Route: 015
     Dates: start: 20070504
  2. TENORMIN [Concomitant]
     Indication: HYPERTENSION
     Route: 048

REACTIONS (1)
  - GLAUCOMA [None]
